FAERS Safety Report 10010843 (Version 3)
Quarter: 2014Q2

REPORT INFORMATION
  Report Type: Report from Study
  Country: US (occurrence: US)
  Receive Date: 20140314
  Receipt Date: 20140409
  Transmission Date: 20141212
  Serious: Yes (Hospitalization, Other)
  Sender: FDA-Public Use
  Company Number: US-ROCHE-1352931

PATIENT
  Age: 69 Year
  Sex: Female
  Weight: 46.72 kg

DRUGS (12)
  1. RITUXIMAB [Suspect]
     Indication: SCLERODERMA
     Dosage: FREQUENCY AS PER PROTOCOL: ON DAYS 1, 8, 15, AND 22 (CYCLE 2 REPEATED AT 3 MONTHS).
     Route: 042
     Dates: start: 20131119, end: 20131210
  2. PREDNISONE [Concomitant]
     Route: 065
     Dates: start: 201306
  3. LIDEX CREAM [Concomitant]
     Route: 065
     Dates: start: 20140109
  4. FLUOROMETHOLONE [Concomitant]
     Route: 065
     Dates: start: 201310
  5. BACTRIM [Concomitant]
     Route: 065
     Dates: start: 201212
  6. ACYCLOVIR [Concomitant]
  7. LOMOTIL (UNITED STATES) [Concomitant]
     Route: 065
     Dates: start: 201310
  8. CHOLECALCIFEROL [Concomitant]
     Route: 065
     Dates: start: 201310
  9. OS-CAL [Concomitant]
  10. GABAPENTIN [Concomitant]
  11. SYNTHROID [Concomitant]
  12. COMPAZINE [Concomitant]
     Route: 065
     Dates: start: 201312

REACTIONS (5)
  - Scleroderma [Unknown]
  - Fasciitis [Unknown]
  - Dyspnoea [Unknown]
  - Infusion related reaction [Recovered/Resolved]
  - Pneumonia fungal [Recovered/Resolved]
